FAERS Safety Report 24918166 (Version 2)
Quarter: 2025Q2

REPORT INFORMATION
  Report Type: Spontaneous
  Country: GB (occurrence: GB)
  Receive Date: 20250203
  Receipt Date: 20250402
  Transmission Date: 20250716
  Serious: Yes (Other)
  Sender: PFIZER
  Company Number: GB-PFIZER INC-PV202500012444

PATIENT
  Age: 72 Year
  Sex: Male

DRUGS (1)
  1. BESPONSA [Suspect]
     Active Substance: INOTUZUMAB OZOGAMICIN
     Indication: Acute lymphocytic leukaemia

REACTIONS (1)
  - Cytokine release syndrome [Recovered/Resolved]
